FAERS Safety Report 21610496 (Version 1)
Quarter: 2022Q4

REPORT INFORMATION
  Report Type: Spontaneous
  Country: NL (occurrence: NL)
  Receive Date: 20221117
  Receipt Date: 20221117
  Transmission Date: 20230112
  Serious: Yes (Hospitalization, Disabling)
  Sender: FDA-Public Use
  Company Number: NL-ROCHE-2907357

PATIENT
  Age: 67 Year
  Sex: Male
  Weight: 98.1 kg

DRUGS (14)
  1. DEXAMETHASONE [Suspect]
     Active Substance: DEXAMETHASONE
     Indication: Diffuse large B-cell lymphoma stage III
     Route: 042
     Dates: start: 20210802, end: 20210805
  2. RITUXIMAB [Suspect]
     Active Substance: RITUXIMAB
     Indication: Diffuse large B-cell lymphoma stage III
     Dosage: DATE OF LAST DOSE PRIOR TO AE: 02/AUG/2021, INTRAVENOUS INFUSION
     Route: 042
     Dates: start: 20210802
  3. CARBOPLATIN [Suspect]
     Active Substance: CARBOPLATIN
     Indication: Diffuse large B-cell lymphoma stage III
     Dosage: 5 AUC, INTRAVENOUS INFUSION
     Route: 042
     Dates: start: 20210803, end: 20210803
  4. EPCORITAMAB [Suspect]
     Active Substance: EPCORITAMAB
     Indication: Diffuse large B-cell lymphoma stage III
     Dosage: INTERMEDIATE DOSE
     Route: 058
     Dates: start: 20210809, end: 20210809
  5. EPCORITAMAB [Suspect]
     Active Substance: EPCORITAMAB
     Dosage: PRIMING DOSE
     Route: 058
     Dates: start: 20210802, end: 20210802
  6. CYTARABINE [Suspect]
     Active Substance: CYTARABINE
     Indication: Diffuse large B-cell lymphoma stage III
     Route: 042
     Dates: start: 20210803, end: 20210803
  7. CYTARABINE [Suspect]
     Active Substance: CYTARABINE
     Route: 040
     Dates: start: 20210803, end: 20210804
  8. PREDNISOLONE [Concomitant]
     Active Substance: PREDNISOLONE
     Indication: Product used for unknown indication
     Dates: start: 20210802, end: 20210819
  9. HYPROMELLOSES [Concomitant]
     Active Substance: HYPROMELLOSES
     Indication: Product used for unknown indication
     Dates: start: 20210803, end: 20210805
  10. CLEMASTINE [Concomitant]
     Active Substance: CLEMASTINE
     Indication: Product used for unknown indication
     Dates: start: 20210809, end: 20210809
  11. MAGNESIUMSULFAAT [Concomitant]
     Indication: Product used for unknown indication
     Dates: start: 20210802, end: 20210804
  12. ONDANSETRON [Concomitant]
     Active Substance: ONDANSETRON
     Indication: Product used for unknown indication
     Dates: start: 20210802, end: 20210805
  13. RASBURICASE [Concomitant]
     Active Substance: RASBURICASE
     Indication: Product used for unknown indication
     Dates: start: 20210802, end: 20210804
  14. ACETAMINOPHEN [Concomitant]
     Active Substance: ACETAMINOPHEN
     Indication: Product used for unknown indication
     Route: 065
     Dates: start: 20210809, end: 20210809

REACTIONS (2)
  - Guillain-Barre syndrome [Recovering/Resolving]
  - Quadriparesis [Not Recovered/Not Resolved]

NARRATIVE: CASE EVENT DATE: 20210810
